FAERS Safety Report 6555145-7 (Version None)
Quarter: 2010Q1

REPORT INFORMATION
  Report Type: 
  Country: None (occurrence: None)
  Receive Date: 20100125
  Receipt Date: 20100113
  Transmission Date: 20100710
  Serious: Yes (Hospitalization)
  Sender: FDA-Public Use
  Company Number: 93743

PATIENT
  Age: 28 Year
  Sex: Male

DRUGS (1)
  1. BUPRENORPHINE [Suspect]

REACTIONS (4)
  - DRUG ABUSE [None]
  - EMBOLIC STROKE [None]
  - LOSS OF CONSCIOUSNESS [None]
  - WRONG TECHNIQUE IN DRUG USAGE PROCESS [None]
